FAERS Safety Report 12705983 (Version 1)
Quarter: 2016Q3

REPORT INFORMATION
  Report Type: Spontaneous
  Country: US (occurrence: None)
  Receive Date: 20160831
  Receipt Date: 20160831
  Transmission Date: 20161109
  Serious: Yes (Other)
  Sender: FDA-Public Use
  Company Number: None

PATIENT
  Age: 58 Year
  Sex: Female
  Weight: 77.11 kg

DRUGS (4)
  1. ABILIFY MAINTENA [Suspect]
     Active Substance: ARIPIPRAZOLE
     Indication: BIPOLAR I DISORDER
     Dosage: ABILIFY MAINGTENA 300 MG - INTRAMUSCULAR - 1ST DOSE, Q 28 DAY
     Route: 030
     Dates: start: 20160812, end: 20160812
  2. LEVOTHYROXINE. [Concomitant]
     Active Substance: LEVOTHYROXINE
  3. SIMVASTATIN. [Concomitant]
     Active Substance: SIMVASTATIN
  4. ABILIFY [Concomitant]
     Active Substance: ARIPIPRAZOLE

REACTIONS (7)
  - Injection site erythema [None]
  - Injection site discomfort [None]
  - Injection site scab [None]
  - Injection site pain [None]
  - Injection site reaction [None]
  - Injection site vesicles [None]
  - Injection site exfoliation [None]

NARRATIVE: CASE EVENT DATE: 20160812
